FAERS Safety Report 9866739 (Version 4)
Quarter: 2014Q2

REPORT INFORMATION
  Report Type: Spontaneous
  Country: US (occurrence: US)
  Receive Date: 20140204
  Receipt Date: 20140404
  Transmission Date: 20141212
  Serious: No
  Sender: FDA-Public Use
  Company Number: US-BIOGENIDEC-2014BI009067

PATIENT
  Age: 64 Year
  Sex: Female
  Weight: 96 kg

DRUGS (11)
  1. TECFIDERA [Suspect]
     Indication: PRODUCT USED FOR UNKNOWN INDICATION
     Route: 048
     Dates: start: 20130707
  2. TECFIDERA [Suspect]
     Indication: PRODUCT USED FOR UNKNOWN INDICATION
     Route: 048
     Dates: start: 20130723, end: 20140131
  3. ALLOPURINOL [Concomitant]
  4. POTASSIUM [Concomitant]
  5. EFFEXOR [Concomitant]
  6. TRIAMT/HCTZ [Concomitant]
  7. TOPIRAMATE [Concomitant]
  8. SIMVASTATIN [Concomitant]
  9. PREVACID [Concomitant]
  10. ZYRTEC [Concomitant]
  11. RESTASIS [Concomitant]

REACTIONS (8)
  - Lymphocyte count decreased [Recovered/Resolved]
  - Toothache [Unknown]
  - Pain [Unknown]
  - Headache [Unknown]
  - Fatigue [Unknown]
  - Somnolence [Unknown]
  - Depression [Unknown]
  - Asthenia [Unknown]
